FAERS Safety Report 6655700-X (Version None)
Quarter: 2010Q1

REPORT INFORMATION
  Report Type: 
  Country: None (occurrence: None)
  Receive Date: 20100326
  Receipt Date: 20100326
  Transmission Date: 20100710
  Serious: Yes (Life-Threatening, Hospitalization)
  Sender: FDA-Public Use
  Company Number: None

PATIENT
  Sex: Female
  Weight: 111.1313 kg

DRUGS (1)
  1. PROCRIT [Suspect]
     Indication: ANAEMIA
     Dosage: 20,000 - 25,000 2WKS INJECT
     Dates: start: 20090401, end: 20090801

REACTIONS (4)
  - DYSPNOEA [None]
  - PULMONARY THROMBOSIS [None]
  - SKIN DISCOLOURATION [None]
  - THROMBOSIS [None]
